FAERS Safety Report 10715199 (Version 1)
Quarter: 2015Q1

REPORT INFORMATION
  Report Type: Spontaneous
  Country: FR (occurrence: FR)
  Receive Date: 20150116
  Receipt Date: 20150116
  Transmission Date: 20150721
  Serious: Yes (Other)
  Sender: FDA-Public Use
  Company Number: FR-ROCHE-1521491

PATIENT
  Age: 66 Year
  Sex: Female

DRUGS (1)
  1. MABTHERA [Suspect]
     Active Substance: RITUXIMAB
     Indication: GRANULOMATOSIS WITH POLYANGIITIS
     Dosage: (TWO INFUSIONS OF 1 G 15 DAYS APART), FOLLOWED BY BIANNUAL MAINTENANCE TREATMENT
     Route: 041

REACTIONS (1)
  - Psoriatic arthropathy [Not Recovered/Not Resolved]
